APPROVED DRUG PRODUCT: CLOBETASOL PROPIONATE
Active Ingredient: CLOBETASOL PROPIONATE
Strength: 0.05%
Dosage Form/Route: SPRAY;TOPICAL
Application: A207218 | Product #001
Applicant: SCIEGEN PHARMACEUTICALS INC
Approved: Apr 28, 2017 | RLD: No | RS: No | Type: DISCN